FAERS Safety Report 11155049 (Version 2)
Quarter: 2015Q2

REPORT INFORMATION
  Report Type: Spontaneous
  Country: US (occurrence: US)
  Receive Date: 20150602
  Receipt Date: 20150617
  Transmission Date: 20150821
  Serious: Yes (Hospitalization, Other)
  Sender: FDA-Public Use
  Company Number: US-MALLINCKRODT-T201502689

PATIENT
  Age: 22 Year
  Sex: Female

DRUGS (3)
  1. GABLOFEN [Suspect]
     Active Substance: BACLOFEN
     Indication: MUSCLE SPASTICITY
     Dosage: 526 MCG/DAY
     Route: 037
     Dates: end: 20150515
  2. GABLOFEN [Suspect]
     Active Substance: BACLOFEN
     Dosage: 361.4 MCG/DAY
     Route: 037
  3. GABLOFEN [Suspect]
     Active Substance: BACLOFEN
     Dosage: 300 MCG/DAY
     Route: 037
     Dates: start: 20150515

REACTIONS (3)
  - Implant site necrosis [Unknown]
  - Implant site dehiscence [Unknown]
  - Pyrexia [Unknown]

NARRATIVE: CASE EVENT DATE: 20150514
